FAERS Safety Report 4396848-2 (Version None)
Quarter: 2004Q3

REPORT INFORMATION
  Report Type: 
  Country: None (occurrence: None)
  Receive Date: 20040713
  Receipt Date: 20040713
  Transmission Date: 20050211
  Serious: No
  Sender: FDA-Public Use
  Company Number: None

PATIENT
  Age: 61 Year
  Sex: Female
  Weight: 91 kg

DRUGS (15)
  1. GATIFLOXACIN [Suspect]
     Indication: PNEUMONIA
     Dosage: X 1
     Dates: start: 20040329
  2. ASPIRIN [Concomitant]
  3. ALLEGRA-D [Concomitant]
  4. TOPROL-XL [Concomitant]
  5. ZOLOFT [Concomitant]
  6. TYLENOL [Concomitant]
  7. ZESTRIL [Concomitant]
  8. PROTONIX [Concomitant]
  9. LEVOTHYROXINE SODIUM [Concomitant]
  10. XANAX [Concomitant]
  11. ZETIA [Concomitant]
  12. CARDAROTE [Concomitant]
  13. AMBIEN [Concomitant]
  14. LASIX [Concomitant]
  15. GLYBURIDE [Concomitant]

REACTIONS (1)
  - HYPOGLYCAEMIA [None]
